FAERS Safety Report 4538235-X (Version None)
Quarter: 2004Q4

REPORT INFORMATION
  Report Type: 
  Country: None (occurrence: None)
  Receive Date: 20041227
  Receipt Date: 20041213
  Transmission Date: 20050328
  Serious: Yes (Hospitalization)
  Sender: FDA-Public Use
  Company Number: FR-JNJFOC-20041103094

PATIENT
  Age: 55 Year
  Sex: Female
  Weight: 68 kg

DRUGS (5)
  1. REMICADE [Suspect]
     Route: 042
  2. REMICADE [Suspect]
     Route: 042
  3. REMICADE [Suspect]
     Route: 042
  4. REMICADE [Suspect]
     Indication: RHEUMATOID ARTHRITIS
     Route: 042
  5. METHOTREXATE [Concomitant]
     Route: 065

REACTIONS (7)
  - ANTINUCLEAR ANTIBODY POSITIVE [None]
  - CHOLANGITIS [None]
  - CYTOLYTIC HEPATITIS [None]
  - FATIGUE [None]
  - HEPATIC FIBROSIS [None]
  - HEPATITIS ACUTE [None]
  - NECROSIS [None]
